FAERS Safety Report 19130473 (Version 2)
Quarter: 2021Q2

REPORT INFORMATION
  Report Type: Report from Study
  Country: CN (occurrence: CN)
  Receive Date: 20210414
  Receipt Date: 20210430
  Transmission Date: 20210717
  Serious: Yes (Other)
  Sender: FDA-Public Use
  Company Number: CN-BRISTOL-MYERS SQUIBB COMPANY-BMS-2021-034290

PATIENT
  Age: 79 Year
  Sex: Male

DRUGS (1)
  1. NIVOLUMAB [Suspect]
     Active Substance: NIVOLUMAB
     Indication: NON-SMALL CELL LUNG CANCER
     Dosage: 100 MILLIGRAM, Q3WK
     Route: 041
     Dates: start: 20201221

REACTIONS (3)
  - Lower limb fracture [Unknown]
  - Off label use [Unknown]
  - Metastasis [Unknown]

NARRATIVE: CASE EVENT DATE: 202103
